FAERS Safety Report 4628391-7 (Version None)
Quarter: 2005Q1

REPORT INFORMATION
  Report Type: 
  Country: None (occurrence: None)
  Receive Date: 20050330
  Receipt Date: 20050318
  Transmission Date: 20050727
  Serious: Yes (Hospitalization)
  Sender: FDA-Public Use
  Company Number: 030-05

PATIENT
  Age: 79 Year
  Sex: Male

DRUGS (3)
  1. AMIODARONE HCL [Suspect]
     Indication: ATRIAL FIBRILLATION
     Dosage: 200 MG QD PO, 400 MG QD PO,COUOLE OF MONTHS
     Route: 048
     Dates: end: 20050306
  2. LASIX [Concomitant]
  3. COZAAR [Concomitant]

REACTIONS (5)
  - ABDOMINAL PAIN UPPER [None]
  - CHEST PAIN [None]
  - MASS [None]
  - PHARYNGOLARYNGEAL PAIN [None]
  - VOMITING [None]
